FAERS Safety Report 21820205 (Version 1)
Quarter: 2023Q1

REPORT INFORMATION
  Report Type: Spontaneous
  Country: US (occurrence: US)
  Receive Date: 20230105
  Receipt Date: 20230105
  Transmission Date: 20230417
  Serious: No
  Sender: FDA-Public Use
  Company Number: US-BRISTOL-MYERS SQUIBB COMPANY-2023-001586

PATIENT
  Age: 24 Year
  Sex: Female
  Weight: 58 kg

DRUGS (4)
  1. NIVOLUMAB [Suspect]
     Active Substance: NIVOLUMAB
     Indication: Malignant melanoma
     Dosage: DOSE : 480MG;     FREQ : EVERY FOUR WEEKS
     Route: 042
     Dates: start: 20220728, end: 20221129
  2. VALTREX [Concomitant]
     Active Substance: VALACYCLOVIR HYDROCHLORIDE
     Indication: Product used for unknown indication
  3. ZOFRAN [Concomitant]
     Active Substance: ONDANSETRON HYDROCHLORIDE
     Indication: Product used for unknown indication
  4. ALBUTEROL [Concomitant]
     Active Substance: ALBUTEROL
     Indication: Product used for unknown indication

REACTIONS (5)
  - Hypotension [Unknown]
  - Tremor [Unknown]
  - Chest discomfort [Unknown]
  - Dizziness [Unknown]
  - Flushing [Unknown]

NARRATIVE: CASE EVENT DATE: 20220825
